FAERS Safety Report 10919884 (Version 3)
Quarter: 2015Q3

REPORT INFORMATION
  Report Type: Report from Study
  Country: US (occurrence: US)
  Receive Date: 20150317
  Receipt Date: 20150831
  Transmission Date: 20151125
  Serious: Yes (Hospitalization, Other)
  Sender: FDA-Public Use
  Company Number: US-AMGEN-USASL2015023259

PATIENT
  Age: 57 Year
  Sex: Female

DRUGS (2)
  1. METHOTREXATE [Concomitant]
     Active Substance: METHOTREXATE
     Dosage: 2.5MG (8 TABS) PO WEEKLY
     Route: 048
  2. ENBREL [Suspect]
     Active Substance: ETANERCEPT
     Indication: RHEUMATOID ARTHRITIS
     Dosage: 50 MG, QWK
     Route: 065
     Dates: start: 20140620, end: 201502

REACTIONS (11)
  - Balance disorder [Recovering/Resolving]
  - Cerebral haemorrhage [Unknown]
  - Rib fracture [Unknown]
  - Hepatic enzyme increased [Recovered/Resolved]
  - Nerve compression [Recovering/Resolving]
  - Surgery [Unknown]
  - Intervertebral disc protrusion [Recovering/Resolving]
  - Musculoskeletal disorder [Recovering/Resolving]
  - Fall [Unknown]
  - Joint injury [Recovered/Resolved]
  - Joint stiffness [Not Recovered/Not Resolved]

NARRATIVE: CASE EVENT DATE: 201407
